FAERS Safety Report 10050090 (Version 1)
Quarter: 2014Q2

REPORT INFORMATION
  Report Type: Spontaneous
  Country: BR (occurrence: BR)
  Receive Date: 20140401
  Receipt Date: 20140401
  Transmission Date: 20141212
  Serious: Yes (Other)
  Sender: FDA-Public Use
  Company Number: BR-ASTRAZENECA-2014SE21301

PATIENT
  Age: 53 Year
  Sex: Male

DRUGS (1)
  1. ESOMEPRAZOLE MAGNESIUM [Suspect]
     Dosage: GENERIC
     Route: 065

REACTIONS (1)
  - Intracranial pressure increased [Unknown]
